FAERS Safety Report 13814707 (Version 9)
Quarter: 2018Q1

REPORT INFORMATION
  Report Type: Report from Study
  Country: US (occurrence: US)
  Receive Date: 20170731
  Receipt Date: 20180116
  Transmission Date: 20180508
  Serious: Yes (Other)
  Sender: FDA-Public Use
  Company Number: US-PFIZER INC-2017328986

PATIENT
  Age: 68 Year
  Sex: Female

DRUGS (4)
  1. IBRANCE [Suspect]
     Active Substance: PALBOCICLIB
     Indication: BREAST CANCER
     Dosage: 125 MG, CYCLIC (DAILY FOR 3 WEEKS ON/1 WEEK OFF)
     Route: 048
     Dates: start: 20170630, end: 20170720
  2. IBRANCE [Suspect]
     Active Substance: PALBOCICLIB
     Dosage: 100 MG, CYCLIC (DAILY FOR 3 WEEKS ON/1 WEEK OFF)
     Route: 048
     Dates: start: 20170630, end: 20171005
  3. IBRANCE [Suspect]
     Active Substance: PALBOCICLIB
     Dosage: 100 MG, CYCLIC (DAILY FOR 3 WEEKS ON/1 WEEK OFF)
     Route: 048
     Dates: start: 20170810
  4. IBRANCE [Suspect]
     Active Substance: PALBOCICLIB
     Dosage: 75 MG, CYCLIC (DAILY; 3 WEEKS ON/ 1 WEEK OFF)
     Route: 048
     Dates: start: 20171018

REACTIONS (16)
  - Thyroid mass [Unknown]
  - Arthralgia [Unknown]
  - Drug dose omission [Unknown]
  - Fatigue [Recovering/Resolving]
  - Alopecia [Unknown]
  - Epistaxis [Unknown]
  - Nausea [Not Recovered/Not Resolved]
  - Dizziness [Unknown]
  - Skin exfoliation [Recovering/Resolving]
  - Rash [Unknown]
  - Condition aggravated [Unknown]
  - Paraesthesia [Unknown]
  - Dry skin [Recovered/Resolved]
  - Bone marrow failure [Recovered/Resolved]
  - Muscle spasms [Unknown]
  - Glossodynia [Unknown]

NARRATIVE: CASE EVENT DATE: 2017
